FAERS Safety Report 16162688 (Version 1)
Quarter: 2019Q2

REPORT INFORMATION
  Report Type: Spontaneous
  Country: ZA (occurrence: ZA)
  Receive Date: 20190405
  Receipt Date: 20190405
  Transmission Date: 20190711
  Serious: Yes (Other)
  Sender: FDA-Public Use
  Company Number: ZA-SA-2019SA090683

PATIENT
  Age: 27 Year
  Sex: Female

DRUGS (3)
  1. CHLOROQUINE. [Suspect]
     Active Substance: CHLOROQUINE
     Dosage: UNK UNK, QD
     Dates: start: 1998
  2. METHOTREXATE SODIUM. [Concomitant]
     Active Substance: METHOTREXATE SODIUM
     Dosage: 25 MG, QW
     Dates: start: 1998
  3. SALAZOPYRIN [Concomitant]
     Active Substance: SULFASALAZINE
     Dosage: 1 G, BID
     Dates: start: 1998

REACTIONS (5)
  - Obesity [Unknown]
  - Depression [Unknown]
  - Psoriasis [Unknown]
  - Hypothyroidism [Unknown]
  - Basedow^s disease [Unknown]

NARRATIVE: CASE EVENT DATE: 1998
